FAERS Safety Report 8813046 (Version 3)
Quarter: 2014Q3

REPORT INFORMATION
  Report Type: Report from Study
  Country: US (occurrence: US)
  Receive Date: 20120927
  Receipt Date: 20140820
  Transmission Date: 20150326
  Serious: Yes (Death)
  Sender: FDA-Public Use
  Company Number: US-ROCHE-1129662

PATIENT
  Sex: Female

DRUGS (1)
  1. HERCEPTIN [Suspect]
     Active Substance: TRASTUZUMAB
     Indication: BREAST CANCER FEMALE
     Dosage: 4MG/KG LOADING DOSE, 2 MG/KG EVERY WEEK LATER AS MAINTENANCE DOSE
     Route: 042
     Dates: start: 20010928, end: 200111

REACTIONS (2)
  - Breast cancer recurrent [Fatal]
  - Pulmonary embolism [Fatal]
